FAERS Safety Report 18122730 (Version 2)
Quarter: 2020Q3

REPORT INFORMATION
  Report Type: Report from Study
  Country: JP (occurrence: JP)
  Receive Date: 20200807
  Receipt Date: 20200922
  Transmission Date: 20201103
  Serious: Yes (Other)
  Sender: FDA-Public Use
  Company Number: JP-ASTELLAS-2019JP012255

PATIENT
  Age: 36 Year
  Sex: Male
  Weight: 63 kg

DRUGS (13)
  1. NEXIUM [Concomitant]
     Active Substance: ESOMEPRAZOLE MAGNESIUM
     Indication: ACUTE MYELOID LEUKAEMIA
     Route: 048
     Dates: start: 20180817
  2. FLUCONAZOLE. [Concomitant]
     Active Substance: FLUCONAZOLE
     Indication: INFECTION
     Dosage: 200 MG/DAY, UNKNOWN FREQ.
     Route: 048
  3. CALONAL [Concomitant]
     Active Substance: ACETAMINOPHEN
     Indication: ACUTE MYELOID LEUKAEMIA
     Dosage: 2700 MG/DAY, UNKNOWN FREQ.
     Route: 048
  4. TRAMAL [Concomitant]
     Active Substance: TRAMADOL
     Indication: ACUTE MYELOID LEUKAEMIA
     Dosage: 300 MG/DAY, UNKNOWN FREQ.
     Route: 048
  5. ETOPOSIDE. [Suspect]
     Active Substance: ETOPOSIDE
     Indication: PRODUCT USED FOR UNKNOWN INDICATION
     Dosage: 100 MG/DAY, UNKNOWN FREQ.
     Route: 041
     Dates: start: 20190601, end: 20190605
  6. VICCLOX [ACICLOVIR] [Concomitant]
     Active Substance: ACYCLOVIR
     Indication: ACUTE MYELOID LEUKAEMIA
     Dosage: 200 MG/DAY, UNKNOWN FREQ.
     Route: 048
  7. FUROSEMIDE. [Concomitant]
     Active Substance: FUROSEMIDE
     Indication: ACUTE MYELOID LEUKAEMIA
     Dosage: 20 MG/DAY, UNKNOWN FREQ.
     Route: 048
  8. RIZE [CLOTIAZEPAM] [Concomitant]
     Active Substance: CLOTIAZEPAM
     Indication: ACUTE MYELOID LEUKAEMIA
     Dosage: 10 MG/DAY, UNKNOWN FREQ.
     Route: 048
  9. ASP2215 [Suspect]
     Active Substance: GILTERITINIB
     Indication: ACUTE MYELOID LEUKAEMIA REFRACTORY
     Route: 048
     Dates: start: 20190606, end: 20190715
  10. ASP2215 [Suspect]
     Active Substance: GILTERITINIB
     Route: 048
     Dates: start: 20190716, end: 20190731
  11. DORAL [Concomitant]
     Active Substance: QUAZEPAM
     Indication: ACUTE MYELOID LEUKAEMIA
     Dosage: 15 MG/DAY, UNKNOWN FREQ.
     Route: 048
  12. SAMTIREL [Concomitant]
     Active Substance: ATOVAQUONE
     Indication: ACUTE MYELOID LEUKAEMIA
     Dosage: 1500 MG/DAY, UNKNOWN FREQ.
     Route: 048
     Dates: start: 20180810
  13. MYLOTARG [Concomitant]
     Active Substance: GEMTUZUMAB OZOGAMICIN
     Indication: PRODUCT USED FOR UNKNOWN INDICATION
     Dosage: UNK UNK, UNKNOWN FREQ.,SINGLE
     Route: 065

REACTIONS (5)
  - Myelosuppression [Not Recovered/Not Resolved]
  - Platelet count decreased [Not Recovered/Not Resolved]
  - Hypokalaemia [Recovered/Resolved]
  - Pneumonia [Recovered/Resolved]
  - Hepatic function abnormal [Recovered/Resolved]

NARRATIVE: CASE EVENT DATE: 20190608
